FAERS Safety Report 9357741 (Version 1)
Quarter: 2013Q2

REPORT INFORMATION
  Report Type: Spontaneous
  Country: US (occurrence: US)
  Receive Date: 20130620
  Receipt Date: 20130620
  Transmission Date: 20140414
  Serious: No
  Sender: FDA-Public Use
  Company Number: US-US-EMD SERONO, INC.-7148031

PATIENT
  Sex: Female

DRUGS (3)
  1. REBIF [Suspect]
     Indication: MULTIPLE SCLEROSIS
     Route: 058
     Dates: start: 20120501
  2. REBIF [Suspect]
     Route: 058
     Dates: end: 20120526
  3. REBIF [Suspect]
     Route: 058
     Dates: start: 20120529

REACTIONS (7)
  - Burning sensation [Not Recovered/Not Resolved]
  - Skin exfoliation [Not Recovered/Not Resolved]
  - Skin discolouration [Not Recovered/Not Resolved]
  - Acne [Not Recovered/Not Resolved]
  - Dry skin [Unknown]
  - Pruritus [Not Recovered/Not Resolved]
  - Pain [Unknown]
